FAERS Safety Report 17953856 (Version 1)
Quarter: 2020Q2

REPORT INFORMATION
  Report Type: Spontaneous
  Country: US (occurrence: US)
  Receive Date: 20200628
  Receipt Date: 20200628
  Transmission Date: 20200714
  Serious: Yes (Other)
  Sender: FDA-Public Use
  Company Number: US-BAXTER-2020BAX013194

PATIENT
  Age: 11 Year
  Sex: Male
  Weight: 54 kg

DRUGS (4)
  1. VANCOMYCIN INJECTION, USP [Suspect]
     Active Substance: VANCOMYCIN
     Indication: ENDOCARDITIS PROPHYLAXIS
     Dosage: INFUSED DURING 60 MIN
     Route: 042
  2. FENTANYL. [Concomitant]
     Active Substance: FENTANYL
     Indication: MAINTENANCE OF ANAESTHESIA
     Route: 042
  3. PANCURONIUM [Concomitant]
     Active Substance: PANCURONIUM
     Indication: ENDOTRACHEAL INTUBATION
     Route: 042
  4. THIOPENTAL [Concomitant]
     Active Substance: THIOPENTAL
     Indication: INDUCTION OF ANAESTHESIA
     Route: 065

REACTIONS (1)
  - Hypoxia [Recovered/Resolved]
